FAERS Safety Report 17273880 (Version 1)
Quarter: 2020Q1

REPORT INFORMATION
  Report Type: Spontaneous
  Country: US (occurrence: US)
  Receive Date: 20191225
  Receipt Date: 20191225
  Transmission Date: 20200409
  Serious: No
  Sender: FDA-Public Use
  Company Number: None

PATIENT
  Age: 64 Year
  Sex: Female

DRUGS (1)
  1. BOTOX [Suspect]
     Active Substance: ONABOTULINUMTOXINA
     Route: 023
     Dates: start: 20191210

REACTIONS (3)
  - Muscle rigidity [None]
  - Nightmare [None]
  - Joint stiffness [None]

NARRATIVE: CASE EVENT DATE: 20191225
